FAERS Safety Report 9565283 (Version 3)
Quarter: 2013Q4

REPORT INFORMATION
  Report Type: Spontaneous
  Country: US (occurrence: US)
  Receive Date: 20130930
  Receipt Date: 20131129
  Transmission Date: 20140711
  Serious: No
  Sender: FDA-Public Use
  Company Number: US-PFIZER INC-2013279765

PATIENT
  Age: 75 Year
  Sex: Male
  Weight: 86.17 kg

DRUGS (6)
  1. CADUET [Suspect]
     Indication: HYPERTENSION
     Dosage: UNK, 2X/DAY
  2. CELEBREX [Suspect]
     Indication: ARTHROPATHY
     Dosage: 200 MG, DAILY
  3. GLUCOTROL XL [Suspect]
     Indication: DIABETES MELLITUS
     Dosage: 10 MG, 2X/DAY
  4. ACCURETIC [Suspect]
     Indication: HYPERTENSION
     Dosage: [QUINAPRIL HYDROCHLORIDE 20 MG]/[ HYDROCHLOROTHIAZIDE 25 MG], DAILY
  5. VIAGRA [Suspect]
     Indication: SEXUAL DYSFUNCTION
     Dosage: 100 MG, DAILY
     Dates: start: 2007
  6. NEXIUM [Concomitant]
     Indication: GASTRIC DISORDER
     Dosage: 20 MG, 2X/DAY

REACTIONS (1)
  - Malaise [Not Recovered/Not Resolved]
